FAERS Safety Report 12311154 (Version 4)
Quarter: 2017Q1

REPORT INFORMATION
  Report Type: Spontaneous
  Country: US (occurrence: US)
  Receive Date: 20160427
  Receipt Date: 20170215
  Transmission Date: 20170428
  Serious: Yes (Other)
  Sender: FDA-Public Use
  Company Number: US-OTSUKA-2016_008673

PATIENT
  Sex: Male

DRUGS (3)
  1. ABILIFY MAINTENA [Suspect]
     Active Substance: ARIPIPRAZOLE
     Dosage: UNK
     Route: 065
     Dates: start: 20160413
  2. ABILIFY MAINTENA [Suspect]
     Active Substance: ARIPIPRAZOLE
     Indication: MENTAL DISORDER
     Dosage: 400 MG, ONCE MONTHLY
     Route: 030
  3. ABILIFY MAINTENA [Suspect]
     Active Substance: ARIPIPRAZOLE
     Dosage: UNK, ONCE MONTHLY
     Route: 065

REACTIONS (7)
  - Diarrhoea [Unknown]
  - Dialysis [Not Recovered/Not Resolved]
  - Dysentery [Unknown]
  - Scratch [Unknown]
  - Amoebic dysentery [Recovered/Resolved]
  - Product use issue [Unknown]
  - Malaise [Not Recovered/Not Resolved]
